FAERS Safety Report 5573453-3 (Version None)
Quarter: 2007Q4

REPORT INFORMATION
  Report Type: 
  Country: None (occurrence: None)
  Receive Date: 20071226
  Receipt Date: 20071220
  Transmission Date: 20080405
  Serious: Yes (Hospitalization, Other)
  Sender: FDA-Public Use
  Company Number: CH-BRISTOL-MYERS SQUIBB COMPANY-14022388

PATIENT
  Age: 39 Year
  Sex: Female

DRUGS (4)
  1. EFAVIRENZ [Suspect]
     Indication: HIV INFECTION
     Route: 048
     Dates: start: 20071018, end: 20071028
  2. TRUVADA [Suspect]
     Indication: HIV INFECTION
     Dosage: 1 DOSAGE FORM = 1 TABLET(200/300MG)
     Route: 048
     Dates: start: 20071018
  3. NEVIRAPINE [Suspect]
     Indication: HIV INFECTION
     Route: 048
     Dates: start: 20071031, end: 20071204
  4. BACTRIM [Concomitant]
     Dates: end: 20071204

REACTIONS (2)
  - APATHY [None]
  - DRUG HYPERSENSITIVITY [None]
